FAERS Safety Report 13178969 (Version 1)
Quarter: 2017Q1

REPORT INFORMATION
  Report Type: Spontaneous
  Country: US (occurrence: US)
  Receive Date: 20170202
  Receipt Date: 20170202
  Transmission Date: 20170428
  Serious: No
  Sender: FDA-Public Use
  Company Number: US-PFIZER INC-2017045246

PATIENT
  Sex: Female

DRUGS (1)
  1. XELJANZ XR [Suspect]
     Active Substance: TOFACITINIB CITRATE

REACTIONS (9)
  - Dry eye [Unknown]
  - Joint crepitation [Unknown]
  - Sleep disorder [Unknown]
  - Neck pain [Unknown]
  - Arthralgia [Unknown]
  - Soft tissue swelling [Unknown]
  - Insomnia [Unknown]
  - Musculoskeletal stiffness [Unknown]
  - Tenderness [Unknown]
